FAERS Safety Report 5158279-7 (Version None)
Quarter: 2006Q4

REPORT INFORMATION
  Report Type: 
  Country: None (occurrence: None)
  Receive Date: 20061117
  Receipt Date: 20061106
  Transmission Date: 20070319
  Serious: Yes (Hospitalization, Other)
  Sender: FDA-Public Use
  Company Number: BEWYE007325SEP06

PATIENT
  Age: 62 Year
  Sex: Female

DRUGS (6)
  1. EFFEXOR XR [Suspect]
     Indication: ANXIETY
     Dosage: 150 MG 1X PER 1 DAY ORAL
     Route: 048
     Dates: start: 20060101, end: 20060801
  2. EFFEXOR XR [Suspect]
     Indication: DEPRESSION
     Dosage: 150 MG 1X PER 1 DAY ORAL
     Route: 048
     Dates: start: 20060101, end: 20060801
  3. LORAZEPAM [Suspect]
     Indication: ANXIETY
     Dosage: 1 MG 1X PER 1 DAY ORAL
     Route: 048
  4. SPIRIVA [Concomitant]
  5. TRAZOLAN (TRAZODONE HYDROCHLORIDE) [Concomitant]
  6. PRAVASTATIN SODIUM [Concomitant]

REACTIONS (3)
  - DRUG WITHDRAWAL SYNDROME [None]
  - EPILEPSY [None]
  - HYPONATRAEMIA [None]
